FAERS Safety Report 21143562 (Version 1)
Quarter: 2022Q3

REPORT INFORMATION
  Report Type: Spontaneous
  Country: PT (occurrence: PT)
  Receive Date: 20220728
  Receipt Date: 20220728
  Transmission Date: 20221026
  Serious: Yes (Other)
  Sender: FDA-Public Use
  Company Number: PT-TEVA-2022-PT-2057692

PATIENT
  Age: 28 Year
  Sex: Male

DRUGS (6)
  1. PALIPERIDONE [Suspect]
     Active Substance: PALIPERIDONE
     Indication: Schizophrenia
     Route: 030
     Dates: start: 2016
  2. PALIPERIDONE [Suspect]
     Active Substance: PALIPERIDONE
     Route: 030
  3. PALIPERIDONE [Suspect]
     Active Substance: PALIPERIDONE
     Dosage: 263 MG QUARTERLY
     Route: 030
     Dates: start: 2020, end: 2020
  4. PALIPERIDONE [Suspect]
     Active Substance: PALIPERIDONE
     Route: 030
     Dates: start: 202009
  5. PALIPERIDONE [Suspect]
     Active Substance: PALIPERIDONE
     Dosage: LAST DOSE OF PALIPERIDONE
     Route: 030
     Dates: start: 202010
  6. ARIPIPRAZOLE [Concomitant]
     Active Substance: ARIPIPRAZOLE
     Indication: Schizophrenia
     Route: 048

REACTIONS (7)
  - Hyperprolactinaemia [Unknown]
  - Male sexual dysfunction [Recovered/Resolved]
  - Weight increased [Recovering/Resolving]
  - Liver function test abnormal [Unknown]
  - Obesity [Recovering/Resolving]
  - Dyslipidaemia [Unknown]
  - Diabetes mellitus [Unknown]

NARRATIVE: CASE EVENT DATE: 20200601
